FAERS Safety Report 16270626 (Version 1)
Quarter: 2019Q2

REPORT INFORMATION
  Report Type: Report from Study
  Country: IT (occurrence: IT)
  Receive Date: 20190503
  Receipt Date: 20190503
  Transmission Date: 20190711
  Serious: Yes (Hospitalization)
  Sender: FDA-Public Use
  Company Number: IT-MYLANLABS-2019M1026815

PATIENT
  Age: 86 Year
  Sex: Female

DRUGS (2)
  1. FLUIMUCIL [Concomitant]
     Active Substance: ACETYLCYSTEINE
  2. ISOPTIN [Suspect]
     Active Substance: VERAPAMIL HYDROCHLORIDE
     Indication: PRODUCT USED FOR UNKNOWN INDICATION
     Dosage: UNK

REACTIONS (2)
  - Palpitations [Unknown]
  - Asthma [Unknown]

NARRATIVE: CASE EVENT DATE: 20181015
